FAERS Safety Report 8935590 (Version 1)
Quarter: 2012Q4

REPORT INFORMATION
  Report Type: 
  Country: US (occurrence: US)
  Receive Date: 20121130
  Receipt Date: 20121130
  Transmission Date: 20130627
  Serious: Yes (Other)
  Sender: FDA-Public Use
  Company Number: US-PFIZER INC-2012300484

PATIENT
  Sex: Male

DRUGS (2)
  1. LIPITOR [Suspect]
     Dosage: 10 mg, UNK
  2. VIAGRA [Suspect]
     Dosage: 100 mg, UNK

REACTIONS (2)
  - Arthropathy [Recovering/Resolving]
  - Weight decreased [Unknown]
